FAERS Safety Report 5623147-0 (Version None)
Quarter: 2008Q1

REPORT INFORMATION
  Report Type: 
  Country: None (occurrence: None)
  Receive Date: 20080207
  Receipt Date: 20080125
  Transmission Date: 20080703
  Serious: Yes (Other)
  Sender: FDA-Public Use
  Company Number: 2008-00479

PATIENT
  Age: 63 Year
  Sex: Female

DRUGS (14)
  1. PREDNISONE [Suspect]
     Indication: ARTHRITIS
     Dosage: 5 MG,BID, ORAL; 10 MG;BID;ORAL
     Route: 048
     Dates: end: 20071001
  2. PREDNISONE [Suspect]
     Indication: LUNG DISORDER
     Dosage: 5 MG,BID, ORAL; 10 MG;BID;ORAL
     Route: 048
     Dates: end: 20071001
  3. PREDNISONE [Suspect]
     Indication: PNEUMONIA
     Dosage: 5 MG,BID, ORAL; 10 MG;BID;ORAL
     Route: 048
     Dates: end: 20071001
  4. PREDNISONE [Suspect]
     Indication: ARTHRITIS
     Dosage: 5 MG,BID, ORAL; 10 MG;BID;ORAL
     Route: 048
     Dates: start: 20051101
  5. PREDNISONE [Suspect]
     Indication: LUNG DISORDER
     Dosage: 5 MG,BID, ORAL; 10 MG;BID;ORAL
     Route: 048
     Dates: start: 20051101
  6. PREDNISONE [Suspect]
     Indication: PNEUMONIA
     Dosage: 5 MG,BID, ORAL; 10 MG;BID;ORAL
     Route: 048
     Dates: start: 20051101
  7. BONIVA [Suspect]
     Indication: ARTHRITIS
     Dosage: 1 PER MONTH, ORAL
     Route: 048
     Dates: start: 20071015
  8. BONIVA [Suspect]
     Indication: OSTEOPOROSIS
     Dosage: 1 PER MONTH, ORAL
     Route: 048
     Dates: start: 20071015
  9. HYDROCODONE W/ACETAMINOPHEN(PARACETAMOL) TABLET [Suspect]
     Indication: ANALGESIA
     Dosage: ORAL
     Route: 048
     Dates: start: 20070101
  10. PLAQUENIL [Concomitant]
  11. VITAMIN D [Concomitant]
  12. CALCIUM [Concomitant]
  13. CENTRUM (MINERALS NOS) [Suspect]
  14. METFORMIN HCL [Concomitant]

REACTIONS (12)
  - ABDOMINAL PAIN UPPER [None]
  - ARTHRITIS [None]
  - CUSHINGOID [None]
  - HYPOAESTHESIA [None]
  - INFLUENZA LIKE ILLNESS [None]
  - NAUSEA [None]
  - OEDEMA PERIPHERAL [None]
  - OSTEOPOROSIS [None]
  - PAIN IN EXTREMITY [None]
  - PARAESTHESIA [None]
  - ROAD TRAFFIC ACCIDENT [None]
  - ROTATOR CUFF SYNDROME [None]
